FAERS Safety Report 5981036-6 (Version None)
Quarter: 2008Q4

REPORT INFORMATION
  Report Type: 
  Country: None (occurrence: None)
  Receive Date: 20081205
  Receipt Date: 20081010
  Transmission Date: 20090506
  Serious: No
  Sender: FDA-Public Use
  Company Number: A0751309A

PATIENT
  Age: 46 Year

DRUGS (2)
  1. COMMIT [Suspect]
     Dates: start: 20080830, end: 20080830
  2. NEXIUM [Concomitant]

REACTIONS (1)
  - DYSPEPSIA [None]
